FAERS Safety Report 9619128 (Version 1)
Quarter: 2013Q4

REPORT INFORMATION
  Report Type: Report from Study
  Country: BR (occurrence: BR)
  Receive Date: 20131014
  Receipt Date: 20131014
  Transmission Date: 20140711
  Serious: Yes (Other)
  Sender: FDA-Public Use
  Company Number: BR-ROCHE-1287829

PATIENT
  Age: 57 Year
  Sex: Male
  Weight: 70 kg

DRUGS (4)
  1. PEG-INTERFERON ALFA 2A [Suspect]
     Indication: HEPATITIS C
     Route: 058
     Dates: start: 20120619
  2. RIBAVIRIN [Suspect]
     Indication: HEPATITIS C
     Route: 048
     Dates: start: 20040818
  3. RIBAVIRIN [Suspect]
     Route: 065
     Dates: start: 20120619
  4. INTERFERON ALFA-2A [Suspect]
     Indication: HEPATITIS C
     Route: 065
     Dates: start: 20040818

REACTIONS (2)
  - Therapeutic product ineffective [Unknown]
  - Toxicity to various agents [Unknown]
